FAERS Safety Report 8513814-3 (Version None)
Quarter: 2012Q3

REPORT INFORMATION
  Report Type: 
  Country: None (occurrence: None)
  Receive Date: 20120705
  Receipt Date: 20120618
  Transmission Date: 20120928
  Serious: Yes (Death, Hospitalization, Disabling, Other)
  Sender: FDA-Public Use
  Company Number: 2012MA007565

PATIENT
  Sex: Female
  Weight: 72.5755 kg

DRUGS (10)
  1. AZITHROMYCIN [Concomitant]
  2. COLACE [Concomitant]
  3. ASPIRIN [Concomitant]
  4. METOCLOPRAMIDE [Suspect]
     Indication: VOMITING
     Dosage: 10 MG; AC + HS PRN; PO
     Route: 048
     Dates: start: 20060331, end: 20080801
  5. METOCLOPRAMIDE [Suspect]
     Indication: NAUSEA
     Dosage: 10 MG; AC + HS PRN; PO
     Route: 048
     Dates: start: 20060331, end: 20080801
  6. METOCLOPRAMIDE [Suspect]
     Indication: GASTROOESOPHAGEAL REFLUX DISEASE
     Dosage: 10 MG; AC + HS PRN; PO
     Route: 048
     Dates: start: 20060331, end: 20080801
  7. METOCLOPRAMIDE [Suspect]
     Indication: IRRITABLE BOWEL SYNDROME
     Dosage: 10 MG; AC + HS PRN; PO
     Route: 048
     Dates: start: 20060331, end: 20080801
  8. AVANDIA [Concomitant]
  9. CLOPIDOGREL [Concomitant]
  10. DIOVAN [Concomitant]

REACTIONS (65)
  - STRESS [None]
  - ASTHENIA [None]
  - PANCREATITIS CHRONIC [None]
  - RENAL FAILURE CHRONIC [None]
  - CEREBROVASCULAR ACCIDENT [None]
  - FAMILY STRESS [None]
  - CONSTIPATION [None]
  - BALANCE DISORDER [None]
  - ANGINA UNSTABLE [None]
  - COUGH [None]
  - COLONIC POLYP [None]
  - RHINITIS ALLERGIC [None]
  - RESTLESS LEGS SYNDROME [None]
  - MYOCLONUS [None]
  - SCOTOMA [None]
  - TREMOR [None]
  - ECONOMIC PROBLEM [None]
  - EMOTIONAL DISORDER [None]
  - DYSKINESIA [None]
  - NAUSEA [None]
  - DIARRHOEA [None]
  - IMPAIRED GASTRIC EMPTYING [None]
  - BRUXISM [None]
  - INFARCTION [None]
  - RESTING TREMOR [None]
  - HYPERTENSION [None]
  - IRON DEFICIENCY ANAEMIA [None]
  - CHEST PAIN [None]
  - WHEEZING [None]
  - DYSPNOEA [None]
  - DEHYDRATION [None]
  - CARDIAC FAILURE CONGESTIVE [None]
  - SINUSITIS [None]
  - HEPATIC STEATOSIS [None]
  - VITAMIN D DECREASED [None]
  - GAIT DISTURBANCE [None]
  - NEUROPATHY PERIPHERAL [None]
  - CORONARY ARTERY DISEASE [None]
  - ABDOMINAL PAIN UPPER [None]
  - HYPONATRAEMIA [None]
  - ISCHAEMIC CARDIOMYOPATHY [None]
  - CAROTID ARTERY STENOSIS [None]
  - DYSPHEMIA [None]
  - DYSARTHRIA [None]
  - PRESYNCOPE [None]
  - FATIGUE [None]
  - UPPER RESPIRATORY TRACT INFECTION [None]
  - ACUTE SINUSITIS [None]
  - OESOPHAGEAL DISORDER [None]
  - ATROPHY [None]
  - WEIGHT DECREASED [None]
  - TARDIVE DYSKINESIA [None]
  - ABDOMINAL DISTENSION [None]
  - GASTRITIS [None]
  - OESOPHAGEAL ULCER [None]
  - GASTROENTERITIS [None]
  - DYSPHONIA [None]
  - EXTRAPYRAMIDAL DISORDER [None]
  - VOMITING [None]
  - IRRITABLE BOWEL SYNDROME [None]
  - URINARY TRACT INFECTION [None]
  - ANGIOPATHY [None]
  - DIABETES MELLITUS [None]
  - CONVULSION [None]
  - BRADYKINESIA [None]
